FAERS Safety Report 5000880-5 (Version None)
Quarter: 2006Q2

REPORT INFORMATION
  Report Type: 
  Country: None (occurrence: None)
  Receive Date: 20060512
  Receipt Date: 20050509
  Transmission Date: 20061013
  Serious: No
  Sender: FDA-Public Use
  Company Number: S05-USA-02246-01

PATIENT
  Age: 27 Year
  Sex: Male

DRUGS (8)
  1. RELAFEN [Suspect]
     Indication: BACK PAIN
     Dosage: 750MG TWICE PER DAY
     Route: 048
     Dates: start: 20050401
  2. LEXAPRO [Suspect]
     Indication: DEPRESSION
     Dosage: 20MG PER DAY
     Route: 048
     Dates: start: 20050412
  3. CYPROHEPTADINE HCL [Concomitant]
     Dosage: 4MG PER DAY
     Route: 065
  4. CLARITIN [Concomitant]
     Dosage: 10MG PER DAY
     Route: 065
  5. HYDROXYZINE [Concomitant]
     Route: 065
  6. INDERAL [Concomitant]
     Dosage: 160MG PER DAY
     Route: 065
  7. DOXYCYCLINE [Concomitant]
     Route: 065
  8. MELATONIN [Concomitant]
     Dosage: 3MG PER DAY
     Route: 065

REACTIONS (1)
  - DRUG SCREEN FALSE POSITIVE [None]
